FAERS Safety Report 11153141 (Version 2)
Quarter: 2015Q2

REPORT INFORMATION
  Report Type: Spontaneous
  Country: US (occurrence: US)
  Receive Date: 20150601
  Receipt Date: 20150608
  Transmission Date: 20150821
  Serious: No
  Sender: FDA-Public Use
  Company Number: US-GLAXOSMITHKLINE-US2015GSK074644

PATIENT
  Sex: Female

DRUGS (1)
  1. TARGET NICOTINE [Suspect]
     Active Substance: NICOTINE
     Dosage: 7 MG, UNK
     Route: 062

REACTIONS (4)
  - Application site rash [Unknown]
  - Nightmare [Unknown]
  - Product quality issue [Unknown]
  - Drug administration error [Unknown]
